FAERS Safety Report 18533542 (Version 1)
Quarter: 2020Q4

REPORT INFORMATION
  Report Type: Spontaneous
  Country: IT (occurrence: IT)
  Receive Date: 20201123
  Receipt Date: 20201123
  Transmission Date: 20210114
  Serious: Yes (Other)
  Sender: FDA-Public Use
  Company Number: IT-TEVA-2020-IT-1850691

PATIENT
  Age: 63 Year
  Sex: Female

DRUGS (4)
  1. FULVESTRANT TEVA [Suspect]
     Active Substance: FULVESTRANT
     Indication: BREAST CANCER
     Dosage: 500MG
     Route: 030
     Dates: start: 20201102, end: 20201102
  2. ELATREX [Concomitant]
     Indication: PAIN
     Dosage: 20MG
     Route: 048
  3. VALSARTAN. [Concomitant]
     Active Substance: VALSARTAN
     Indication: HYPERTENSION
     Dosage: 80MG
  4. IBRANCE 125 MG HARD CAPSULES [Concomitant]
     Indication: BREAST CANCER
     Dosage: 125MG
     Route: 048
     Dates: start: 20190604

REACTIONS (4)
  - Parosmia [Recovered/Resolved]
  - Throat tightness [Recovered/Resolved]
  - Erythema [Recovered/Resolved]
  - Rhinitis [Recovered/Resolved]

NARRATIVE: CASE EVENT DATE: 20201102
